FAERS Safety Report 15453561 (Version 8)
Quarter: 2019Q2

REPORT INFORMATION
  Report Type: Report from Study
  Country: US (occurrence: US)
  Receive Date: 20181001
  Receipt Date: 20190627
  Transmission Date: 20190711
  Serious: Yes (Hospitalization, Other)
  Sender: FDA-Public Use
  Company Number: US-ACTELION-A-US2018-175338

PATIENT
  Age: 56 Year
  Sex: Female

DRUGS (23)
  1. URSODIOL. [Concomitant]
     Active Substance: URSODIOL
     Dosage: 300 MG, BID
     Route: 048
     Dates: start: 20170407, end: 20190114
  2. FUROSEMIDE. [Concomitant]
     Active Substance: FUROSEMIDE
     Dosage: 60 MG, BID
     Route: 042
  3. ENULOSE [Concomitant]
     Active Substance: LACTULOSE
     Dosage: 20 G, TID
     Route: 048
     Dates: start: 20180410, end: 20180612
  4. ADEMPAS [Concomitant]
     Active Substance: RIOCIGUAT
  5. SERTRALINE [Concomitant]
     Active Substance: SERTRALINE HYDROCHLORIDE
     Dosage: 50 MG, QD
  6. OMEPRAZOLE. [Concomitant]
     Active Substance: OMEPRAZOLE
     Dosage: 40 MG, QD
  7. CHOLESTYRAMINE. [Concomitant]
     Active Substance: CHOLESTYRAMINE
     Dosage: 4 G, TID
     Route: 048
     Dates: start: 20180406
  8. CEFPODOXIME [Concomitant]
     Active Substance: CEFPODOXIME
     Dosage: UNK
     Dates: start: 20190119
  9. CEFTRIAXONE. [Concomitant]
     Active Substance: CEFTRIAXONE
     Dosage: UNK
     Dates: start: 20190119
  10. LEVOFLOXACIN. [Concomitant]
     Active Substance: LEVOFLOXACIN
     Dosage: UNK
     Dates: start: 20190119
  11. OPSUMIT [Suspect]
     Active Substance: MACITENTAN
     Indication: PULMONARY ARTERIAL HYPERTENSION
     Dosage: 10 MG, QD
     Route: 048
     Dates: start: 20180620, end: 20190304
  12. XIFAXAN [Concomitant]
     Active Substance: RIFAXIMIN
     Dosage: 550 MG, BID
     Route: 048
     Dates: start: 20180725, end: 20180828
  13. SPIRONOLACTONE. [Concomitant]
     Active Substance: SPIRONOLACTONE
     Dosage: 25 MG, QD
  14. SPIRONOLACTONE. [Concomitant]
     Active Substance: SPIRONOLACTONE
     Dosage: 100 MG, BID
  15. FUROSEMIDE. [Concomitant]
     Active Substance: FUROSEMIDE
     Dosage: 40 MG, QD
  16. LEVOTHYROXINE. [Concomitant]
     Active Substance: LEVOTHYROXINE
     Dosage: 50 MG, QD
  17. IRON [Concomitant]
     Active Substance: IRON
     Dosage: 325 MG, BID
  18. LACTULOSE. [Concomitant]
     Active Substance: LACTULOSE
     Dosage: 10G/15ML , TID
     Route: 048
     Dates: start: 20170422, end: 20180410
  19. URSODIOL. [Concomitant]
     Active Substance: URSODIOL
     Dosage: 600 MG, BID
     Route: 048
     Dates: start: 20160127, end: 20160305
  20. ONDANSETRON [Concomitant]
     Active Substance: ONDANSETRON
     Dosage: 4 MG, UNK
  21. HYDROXYCHLOROQUINE [Concomitant]
     Active Substance: HYDROXYCHLOROQUINE
     Dosage: 200 MG, QD
  22. PIPERACILLIN AND TAZOBACTAM [Concomitant]
     Active Substance: PIPERACILLIN SODIUM\TAZOBACTAM SODIUM
     Dosage: UNK
     Dates: start: 20190119
  23. RIFAXIMIN. [Concomitant]
     Active Substance: RIFAXIMIN
     Dosage: 550 MG, BID
     Route: 048
     Dates: start: 20160303, end: 20180725

REACTIONS (40)
  - Fluid overload [Not Recovered/Not Resolved]
  - Right atrial dilatation [Recovered/Resolved]
  - Weight increased [Unknown]
  - Hepatic failure [Not Recovered/Not Resolved]
  - Nausea [Recovering/Resolving]
  - General physical health deterioration [Unknown]
  - Blood bilirubin increased [Recovering/Resolving]
  - Dyspnoea paroxysmal nocturnal [Unknown]
  - Blister [Recovered/Resolved]
  - Nervousness [Unknown]
  - Liver transplant [Recovered/Resolved]
  - Insomnia [Unknown]
  - Chest discomfort [Unknown]
  - Ocular discomfort [Not Recovered/Not Resolved]
  - Oedema [Recovered/Resolved]
  - Fatigue [Unknown]
  - Cough [Unknown]
  - Acute kidney injury [Recovered/Resolved]
  - Quality of life decreased [Unknown]
  - Pulmonary oedema [Recovered/Resolved]
  - Generalised oedema [Unknown]
  - Dyspnoea [Recovered/Resolved]
  - Anaemia [Not Recovered/Not Resolved]
  - Nutritional supplementation [Recovering/Resolving]
  - Right ventricular dilatation [Recovered/Resolved]
  - Pneumonia [Recovered/Resolved]
  - Pain [Unknown]
  - Hepatic cirrhosis [Unknown]
  - Thrombocytopenia [Not Recovered/Not Resolved]
  - Vomiting [Unknown]
  - Oedema peripheral [Recovering/Resolving]
  - Condition aggravated [Unknown]
  - Orthopnoea [Unknown]
  - Pulmonary arterial pressure increased [Recovering/Resolving]
  - Haemoglobin decreased [Not Recovered/Not Resolved]
  - Palpitations [Unknown]
  - Headache [Not Recovered/Not Resolved]
  - Eye injury [Not Recovered/Not Resolved]
  - Gait disturbance [Unknown]
  - Tremor [Unknown]

NARRATIVE: CASE EVENT DATE: 20180702
